FAERS Safety Report 16032446 (Version 2)
Quarter: 2019Q1

REPORT INFORMATION
  Report Type: Report from Study
  Country: GB (occurrence: GB)
  Receive Date: 20190304
  Receipt Date: 20190311
  Transmission Date: 20190418
  Serious: Yes (Life-Threatening, Hospitalization, Other)
  Sender: FDA-Public Use
  Company Number: PHHY2018GB050530

PATIENT
  Age: 70 Year
  Sex: Male
  Weight: 98 kg

DRUGS (3)
  1. ENTRESTO [Suspect]
     Active Substance: SACUBITRIL\VALSARTAN
     Dosage: 200 MG(SACUBITRIL 97 MG/ VALSARTAN 103 MG), BID
     Route: 048
     Dates: start: 20171221
  2. ENTRESTO [Suspect]
     Active Substance: SACUBITRIL\VALSARTAN
     Indication: CARDIAC FAILURE CHRONIC
     Dosage: 100 MG(SACUBITRIL 49 MG/ VALSARTAN 51 MG, BID
     Route: 048
     Dates: start: 20171102, end: 20171123
  3. ENTRESTO [Suspect]
     Active Substance: SACUBITRIL\VALSARTAN
     Dosage: 200 MG(SACUBITRIL 97 MG/ VALSARTAN 103 MG), BID
     Route: 048
     Dates: start: 20171123

REACTIONS (10)
  - Visual impairment [Recovered/Resolved]
  - Arteriogram coronary abnormal [Not Recovered/Not Resolved]
  - Air embolism [Recovered/Resolved]
  - Slow speech [Recovered/Resolved]
  - Lower respiratory tract infection [Recovered/Resolved]
  - Transient ischaemic attack [Unknown]
  - Headache [Recovered/Resolved]
  - Aphasia [Recovered/Resolved]
  - Essential tremor [Recovered/Resolved]
  - Cerebrovascular disorder [Unknown]

NARRATIVE: CASE EVENT DATE: 20180124
